FAERS Safety Report 6986217-0 (Version None)
Quarter: 2010Q3

REPORT INFORMATION
  Report Type: 
  Country: None (occurrence: None)
  Receive Date: 20100915
  Receipt Date: 20090616
  Transmission Date: 20110219
  Serious: No
  Sender: FDA-Public Use
  Company Number: US-WYE-H09777909

PATIENT
  Sex: Female

DRUGS (4)
  1. PRISTIQ [Suspect]
     Indication: DEPRESSION
     Route: 048
     Dates: start: 20081201, end: 20090501
  2. PRISTIQ [Suspect]
     Dosage: BEGAN TO TAPER DOSE
     Route: 048
     Dates: start: 20090501, end: 20090101
  3. PRISTIQ [Suspect]
     Route: 048
     Dates: start: 20090101, end: 20090101
  4. PRISTIQ [Suspect]
     Route: 048
     Dates: start: 20090101

REACTIONS (3)
  - DRUG WITHDRAWAL SYNDROME [None]
  - HEADACHE [None]
  - NAUSEA [None]
